FAERS Safety Report 13582804 (Version 9)
Quarter: 2017Q4

REPORT INFORMATION
  Report Type: Report from Study
  Country: PL (occurrence: PL)
  Receive Date: 20170525
  Receipt Date: 20171211
  Transmission Date: 20180320
  Serious: Yes (Hospitalization)
  Sender: FDA-Public Use
  Company Number: PL-BIOGEN-2017BI00388018

PATIENT
  Age: 40 Year
  Sex: Male
  Weight: 70 kg

DRUGS (3)
  1. DACLIZUMAB HYP [Suspect]
     Active Substance: DACLIZUMAB
     Indication: MULTIPLE SCLEROSIS
     Route: 058
     Dates: start: 20140217, end: 20170411
  2. DACLIZUMAB HYP [Suspect]
     Active Substance: DACLIZUMAB
     Route: 058
     Dates: start: 20170703
  3. BISOCARD [Concomitant]
     Active Substance: BISOPROLOL
     Indication: HYPERTENSION
     Dates: start: 2006

REACTIONS (1)
  - Pseudolymphoma [Not Recovered/Not Resolved]

NARRATIVE: CASE EVENT DATE: 20170327
